FAERS Safety Report 25826546 (Version 2)
Quarter: 2025Q4

REPORT INFORMATION
  Report Type: Spontaneous
  Country: US (occurrence: US)
  Receive Date: 20250920
  Receipt Date: 20251105
  Transmission Date: 20260117
  Serious: Yes (Hospitalization, Other)
  Sender: AUROBINDO
  Company Number: US-MLMSERVICE-20250904-PI632142-00095-1

PATIENT
  Age: 80 Year
  Sex: Male

DRUGS (2)
  1. HYDROXYCHLOROQUINE [Suspect]
     Active Substance: HYDROXYCHLOROQUINE
     Indication: Rheumatoid arthritis
     Dosage: UNK
     Route: 065
  2. PREDNISONE [Suspect]
     Active Substance: PREDNISONE
     Indication: Rheumatoid arthritis
     Dosage: (LOW-DOSE)
     Route: 065

REACTIONS (9)
  - Cardiac failure [Recovering/Resolving]
  - Pneumonia [Recovering/Resolving]
  - Myopathy [Recovering/Resolving]
  - Muscle atrophy [Recovering/Resolving]
  - Dysphonia [Recovering/Resolving]
  - Dysarthria [Recovering/Resolving]
  - Hypervolaemia [Recovering/Resolving]
  - Respiratory disorder [Recovering/Resolving]
  - Weight decreased [Recovering/Resolving]
